FAERS Safety Report 8032678-8 (Version None)
Quarter: 2012Q1

REPORT INFORMATION
  Report Type: 
  Country: None (occurrence: None)
  Receive Date: 20120110
  Receipt Date: 20111104
  Transmission Date: 20120608
  Serious: No
  Sender: FDA-Public Use
  Company Number: US-COVIDIEN/TYCO HEALTHCARE/MALLINCKRODT-T201102366

PATIENT
  Sex: Male

DRUGS (13)
  1. OPTIRAY 160 [Suspect]
     Indication: ARTERIOGRAM CORONARY
     Dosage: 150 ML, SINGLE
     Route: 042
     Dates: start: 20111103, end: 20111103
  2. ASPIRIN [Concomitant]
  3. AVODART [Concomitant]
  4. GLIMEPIRIDE [Concomitant]
  5. PREDNISONE [Concomitant]
     Indication: PREMEDICATION
     Dosage: 50 UNK, UNK
     Dates: start: 20111103
  6. VYTORIN [Concomitant]
  7. VITAMINS                           /90003601/ [Concomitant]
  8. JANUMET [Concomitant]
  9. IMDUR [Concomitant]
  10. UROXATRAL [Concomitant]
  11. NEXIUM [Concomitant]
  12. TOPROL-XL [Concomitant]
  13. BENADRYL [Concomitant]
     Indication: PREMEDICATION
     Dosage: 50 UNK, UNK
     Dates: start: 20111103

REACTIONS (1)
  - TREMOR [None]
